FAERS Safety Report 5787819-X (Version None)
Quarter: 2008Q2

REPORT INFORMATION
  Report Type: 
  Country: None (occurrence: None)
  Receive Date: 20080625
  Receipt Date: 20080625
  Transmission Date: 20081010
  Serious: Yes (Death, Hospitalization)
  Sender: FDA-Public Use
  Company Number: PHHO2001JP01423

PATIENT
  Sex: Female
  Weight: 57 kg

DRUGS (3)
  1. ZOLEDRONATE T29581+SOLINF [Suspect]
     Indication: METASTASES TO BONE
     Dosage: TREATMENT PERIOD
     Route: 042
     Dates: start: 20010126, end: 20010126
  2. TAXOTERE [Concomitant]
     Indication: BREAST CANCER
     Dosage: 40 MG, QW
     Route: 042
     Dates: start: 20001012
  3. DECADRON [Concomitant]
     Dosage: 4 MG, QW
     Route: 042
     Dates: start: 20001012

REACTIONS (9)
  - ALTERED STATE OF CONSCIOUSNESS [None]
  - CEREBELLAR INFARCTION [None]
  - DIZZINESS [None]
  - EATING DISORDER [None]
  - HEADACHE [None]
  - INTRACRANIAL PRESSURE INCREASED [None]
  - MENINGEAL NEOPLASM [None]
  - PYREXIA [None]
  - VOMITING [None]
